FAERS Safety Report 25961834 (Version 1)
Quarter: 2025Q4

REPORT INFORMATION
  Report Type: Spontaneous
  Country: US (occurrence: US)
  Receive Date: 20251027
  Receipt Date: 20251027
  Transmission Date: 20260118
  Serious: Yes (Hospitalization, Disabling)
  Sender: KINDEVA DRUG DELIVERY L.P.
  Company Number: US-Kindeva Drug Delivery L.P.-2187341

PATIENT
  Age: 69 Year
  Sex: Female

DRUGS (15)
  1. ALBUTEROL SULFATE [Suspect]
     Active Substance: ALBUTEROL SULFATE
  2. ATORVASTATIN [Suspect]
     Active Substance: ATORVASTATIN
  3. CETIRIZINE [Concomitant]
     Active Substance: CETIRIZINE HYDROCHLORIDE
  4. TIOTROPIUM BROMIDE [Concomitant]
     Active Substance: TIOTROPIUM BROMIDE
  5. PANTOPRAZOLE [Concomitant]
     Active Substance: PANTOPRAZOLE
  6. SEMAGLUTIDE [Concomitant]
     Active Substance: SEMAGLUTIDE
  7. LIDOCAINE [Concomitant]
     Active Substance: LIDOCAINE
  8. LAMOTRIGINE [Concomitant]
     Active Substance: LAMOTRIGINE
  9. GABAPENTIN [Concomitant]
     Active Substance: GABAPENTIN
  10. APIXABAN [Concomitant]
     Active Substance: APIXABAN
  11. OXYBUTYNIN CHLORIDE [Concomitant]
     Active Substance: OXYBUTYNIN CHLORIDE
  12. BISOPROLOL. [Concomitant]
  13. AZELASTINE. [Concomitant]
     Active Substance: AZELASTINE HYDROCHLORIDE
  14. MORPHINE [Suspect]
     Active Substance: MORPHINE
  15. FUROSEMIDE [Suspect]
     Active Substance: FUROSEMIDE

REACTIONS (4)
  - Rhabdomyolysis [Recovering/Resolving]
  - Device programming error [Recovering/Resolving]
  - Fall [Recovering/Resolving]
  - Hypokalaemia [Recovering/Resolving]

NARRATIVE: CASE EVENT DATE: 20250101
